FAERS Safety Report 6714590-7 (Version None)
Quarter: 2010Q2

REPORT INFORMATION
  Report Type: 
  Country: None (occurrence: None)
  Receive Date: 20100507
  Receipt Date: 20100430
  Transmission Date: 20101027
  Serious: Yes (Hospitalization)
  Sender: FDA-Public Use
  Company Number: US-BIOGENIDEC-2009BI025884

PATIENT
  Age: 70 Year
  Sex: Female

DRUGS (3)
  1. AVONEX [Suspect]
     Indication: MULTIPLE SCLEROSIS
     Route: 030
     Dates: start: 20030801, end: 20050531
  2. AVONEX [Suspect]
     Route: 030
     Dates: start: 20051001
  3. AVONEX [Suspect]
     Route: 030
     Dates: start: 19970101, end: 20030801

REACTIONS (4)
  - ASTHENIA [None]
  - FALL [None]
  - FIBULA FRACTURE [None]
  - TIBIA FRACTURE [None]
